FAERS Safety Report 10038147 (Version 2)
Quarter: 2014Q2

REPORT INFORMATION
  Report Type: Spontaneous
  Country: DE (occurrence: DE)
  Receive Date: 20140326
  Receipt Date: 20140509
  Transmission Date: 20141212
  Serious: Yes (Hospitalization, Other)
  Sender: FDA-Public Use
  Company Number: DE-UCBSA-115582

PATIENT
  Age: 13 Year
  Sex: Male
  Weight: 39.2 kg

DRUGS (3)
  1. EQUASYM RETARD [Suspect]
     Indication: ATTENTION DEFICIT/HYPERACTIVITY DISORDER
     Dosage: IN THE MORNING
     Route: 048
     Dates: start: 20101201, end: 201012
  2. EQUASYM RETARD [Suspect]
     Indication: ATTENTION DEFICIT/HYPERACTIVITY DISORDER
     Route: 048
     Dates: start: 201012
  3. MEDIKINET [Suspect]
     Dates: start: 201009

REACTIONS (2)
  - Type 1 diabetes mellitus [Not Recovered/Not Resolved]
  - Coeliac disease [Not Recovered/Not Resolved]
